FAERS Safety Report 14703964 (Version 2)
Quarter: 2018Q2

REPORT INFORMATION
  Report Type: Spontaneous
  Country: BR (occurrence: BR)
  Receive Date: 20180402
  Receipt Date: 20180413
  Transmission Date: 20180711
  Serious: Yes (Other)
  Sender: FDA-Public Use
  Company Number: PHHY2018BR057340

PATIENT
  Sex: Male
  Weight: 45 kg

DRUGS (1)
  1. TEGRETOL [Suspect]
     Active Substance: CARBAMAZEPINE
     Indication: MICROCEPHALY
     Dosage: 10 ML, BID (BEING AT LUNCH AND BEFORE SLEEPING)
     Route: 048
     Dates: start: 2005

REACTIONS (3)
  - Seizure [Recovered/Resolved]
  - Memory impairment [Recovered/Resolved]
  - Off label use [Unknown]

NARRATIVE: CASE EVENT DATE: 2006
